FAERS Safety Report 9123376 (Version 1)
Quarter: 2013Q1

REPORT INFORMATION
  Report Type: Spontaneous
  Country: CN (occurrence: CN)
  Receive Date: 20130227
  Receipt Date: 20130227
  Transmission Date: 20140127
  Serious: Yes (Other)
  Sender: FDA-Public Use
  Company Number: CN-ROCHE-1195943

PATIENT
  Sex: Female
  Weight: 62 kg

DRUGS (4)
  1. HERCEPTIN [Suspect]
     Indication: BREAST CANCER
     Route: 041
     Dates: start: 201104
  2. HERCEPTIN [Suspect]
     Route: 041
     Dates: start: 201209
  3. DOCETAXEL [Concomitant]
     Indication: BREAST CANCER
     Route: 041
     Dates: start: 201104
  4. PACLITAXEL [Concomitant]
     Indication: BREAST CANCER
     Route: 041
     Dates: start: 201104

REACTIONS (3)
  - Breast cancer recurrent [Unknown]
  - Skin tightness [Recovering/Resolving]
  - Back pain [Recovering/Resolving]
